FAERS Safety Report 4700772-2 (Version None)
Quarter: 2005Q2

REPORT INFORMATION
  Report Type: 
  Country: None (occurrence: None)
  Receive Date: 20050624
  Receipt Date: 20040716
  Transmission Date: 20051028
  Serious: Yes (Death, Hospitalization)
  Sender: FDA-Public Use
  Company Number: 374831

PATIENT
  Sex: Female
  Weight: 81.6 kg

DRUGS (1)
  1. XELODA [Suspect]
     Indication: BREAST CANCER
     Dosage: 5000 MG DAILY ORAL
     Route: 048

REACTIONS (4)
  - ANOREXIA [None]
  - DEATH [None]
  - DEHYDRATION [None]
  - STOMATITIS [None]
